FAERS Safety Report 10657207 (Version 2)
Quarter: 2014Q4

REPORT INFORMATION
  Report Type: Spontaneous
  Country: FR (occurrence: None)
  Receive Date: 20141215
  Receipt Date: 20141230
  Transmission Date: 20150529
  Serious: Yes (Hospitalization)
  Sender: FDA-Public Use
  Company Number: 2657974

PATIENT
  Age: 68 Year
  Sex: Female

DRUGS (4)
  1. SOLU-MEDROL [Concomitant]
     Active Substance: METHYLPREDNISOLONE SODIUM SUCCINATE
  2. POLARAMINE [Concomitant]
     Active Substance: DEXCHLORPHENIRAMINE MALEATE
  3. AZANTAC [Concomitant]
     Active Substance: RANITIDINE HYDROCHLORIDE
  4. PACLITAXEL. [Suspect]
     Active Substance: PACLITAXEL
     Indication: ENDOMETRIAL CANCER
     Dosage: (NOT OTHERWISE SPECIFIED)
     Route: 042
     Dates: end: 20141116

REACTIONS (6)
  - Pulse absent [None]
  - Seizure [None]
  - Blood pressure abnormal [None]
  - Cyanosis [None]
  - Respiratory arrest [None]
  - Loss of consciousness [None]

NARRATIVE: CASE EVENT DATE: 20141113
